FAERS Safety Report 9953245 (Version 1)
Quarter: 2014Q1

REPORT INFORMATION
  Report Type: Report from Study
  Country: US (occurrence: US)
  Receive Date: 20140304
  Receipt Date: 20140304
  Transmission Date: 20141002
  Serious: No
  Sender: FDA-Public Use
  Company Number: US-ABBVIE-13P-163-1077381-00

PATIENT
  Sex: Female

DRUGS (5)
  1. HUMIRA [Suspect]
     Indication: PSORIASIS
  2. PERCOCET [Concomitant]
     Indication: BACK PAIN
     Dosage: AS NEEDED
     Route: 048
  3. AMBIEN [Concomitant]
     Indication: INSOMNIA
     Dosage: AT BEDTIME
     Route: 048
  4. OPANA [Concomitant]
     Indication: BACK PAIN
     Route: 048
  5. CHANTIX [Concomitant]
     Indication: EX-TOBACCO USER

REACTIONS (2)
  - Injection site pain [Not Recovered/Not Resolved]
  - Arthralgia [Not Recovered/Not Resolved]
